FAERS Safety Report 7289532-9 (Version None)
Quarter: 2011Q1

REPORT INFORMATION
  Report Type: 
  Country: None (occurrence: None)
  Receive Date: 20110213
  Receipt Date: 20110207
  Transmission Date: 20110831
  Serious: Yes (Death, Hospitalization)
  Sender: FDA-Public Use
  Company Number: US-ELI_LILLY_AND_COMPANY-US201012003630

PATIENT
  Sex: Female
  Weight: 75.737 kg

DRUGS (17)
  1. PEPCID AC [Concomitant]
     Indication: GASTROOESOPHAGEAL REFLUX DISEASE
     Dosage: UNK, UNKNOWN
     Route: 065
     Dates: start: 20080101
  2. PEMETREXED [Suspect]
     Indication: NON-SMALL CELL LUNG CANCER
     Dosage: 500 MG/M2, EVERY 21 DAYS
     Route: 042
     Dates: start: 20101026
  3. CARBOPLATIN [Suspect]
     Indication: NON-SMALL CELL LUNG CANCER
     Dosage: 6 AUC, EVERY 21 DAYS
     Route: 042
     Dates: start: 20101026
  4. ALPRAZOLAM [Concomitant]
     Indication: ANXIETY
     Dosage: UNK, UNKNOWN
     Route: 065
     Dates: start: 19800101
  5. SENNA LAX [Concomitant]
     Indication: CONSTIPATION
     Dosage: UNK, UNKNOWN
     Route: 065
     Dates: start: 19900101
  6. FOLIC ACID [Concomitant]
     Indication: PROPHYLAXIS
     Dosage: UNK, UNKNOWN
     Route: 065
     Dates: start: 20101019
  7. ASCORBIC ACID [Concomitant]
     Indication: SUPPLEMENTATION THERAPY
     Dosage: UNK, UNKNOWN
     Route: 065
     Dates: start: 20080101
  8. METOPROLOL [Concomitant]
     Indication: HYPERTENSION
     Dosage: UNK, UNKNOWN
     Route: 065
     Dates: start: 20080101
  9. POTASSIUM CHLORIDE [Concomitant]
     Indication: HYPOKALAEMIA
     Dosage: UNK, UNKNOWN
     Route: 065
     Dates: start: 20101119
  10. FERRO-SEQUELS [Concomitant]
     Indication: ANAEMIA
     Dosage: UNK, UNKNOWN
     Route: 065
     Dates: start: 20080101
  11. LEVOTHYROXINE SODIUM [Concomitant]
     Indication: HYPOTHYROIDISM
     Dosage: UNK, UNKNOWN
     Route: 065
  12. SIMVASTATIN [Concomitant]
     Indication: HYPERLIPIDAEMIA
     Dosage: UNK, UNKNOWN
     Route: 065
     Dates: start: 20060101
  13. VITAMIN B-12 [Concomitant]
     Indication: PROPHYLAXIS
     Dosage: UNK, UNKNOWN
     Route: 065
     Dates: start: 20101019
  14. HYDROCODONE [Concomitant]
     Indication: PAIN
     Dosage: UNK, UNKNOWN
     Route: 065
     Dates: start: 20100701
  15. FUROSEMIDE [Concomitant]
     Indication: OEDEMA
     Dosage: UNK, UNKNOWN
     Route: 065
     Dates: start: 20090101
  16. IMODIUM MULTI-SYMPTOM RELIEF [Concomitant]
     Indication: DIARRHOEA
     Dosage: UNK, UNKNOWN
     Route: 065
     Dates: start: 20101120
  17. DEXAMETHASONE [Concomitant]
     Indication: PROPHYLAXIS
     Dosage: UNK, UNKNOWN
     Route: 065
     Dates: start: 20101025

REACTIONS (3)
  - PLEURAL EFFUSION [None]
  - RESPIRATORY FAILURE [None]
  - PNEUMONIA [None]
